FAERS Safety Report 7669357-2 (Version None)
Quarter: 2011Q3

REPORT INFORMATION
  Report Type: 
  Country: None (occurrence: None)
  Receive Date: 20110808
  Receipt Date: 20110805
  Transmission Date: 20111222
  Serious: Yes (Death, Other)
  Sender: FDA-Public Use
  Company Number: PHHY2011GR39888

PATIENT
  Age: 66 Year
  Sex: Male

DRUGS (1)
  1. EXTAVIA [Suspect]

REACTIONS (2)
  - DEATH [None]
  - HYPERTENSION [None]
